FAERS Safety Report 6897761-9 (Version None)
Quarter: 2010Q3

REPORT INFORMATION
  Report Type: 
  Country: None (occurrence: None)
  Receive Date: 20100802
  Receipt Date: 20070711
  Transmission Date: 20110219
  Serious: No
  Sender: FDA-Public Use
  Company Number: US-PFIZER INC-2007056695

PATIENT
  Sex: Female
  Weight: 56.7 kg

DRUGS (9)
  1. LYRICA [Suspect]
     Indication: NEUROPATHY PERIPHERAL
     Dates: start: 20070101
  2. NEURONTIN [Suspect]
     Indication: NEUROPATHY PERIPHERAL
     Dates: start: 20070201
  3. FISH OIL [Concomitant]
  4. CALCIUM [Concomitant]
  5. IBANDRONATE SODIUM [Concomitant]
     Indication: OSTEOPOROSIS PROPHYLAXIS
  6. MULTI-VITAMINS [Concomitant]
  7. TAXOTERE [Concomitant]
     Indication: PROPHYLAXIS
     Dosage: 1 EVERY 2 MONTHS
  8. AVASTIN [Concomitant]
  9. PROCRIT [Concomitant]
     Indication: ANAEMIA
     Dosage: EVERY 1 TO 2 MONTHS

REACTIONS (1)
  - DRUG INEFFECTIVE [None]
